FAERS Safety Report 7308981-3 (Version None)
Quarter: 2011Q1

REPORT INFORMATION
  Report Type: 
  Country: None (occurrence: None)
  Receive Date: 20110211
  Receipt Date: 20110128
  Transmission Date: 20110831
  Serious: Yes (Hospitalization)
  Sender: FDA-Public Use
  Company Number: 012262

PATIENT
  Age: 84 Year
  Sex: Female

DRUGS (17)
  1. POVIDONE IODINE [Concomitant]
  2. ATORVASTATIN (ATORVASTATIN) [Concomitant]
  3. TROPICAMIDE [Concomitant]
  4. MIXTARD HUMAN 70/30 [Concomitant]
  5. ISOTARD (ISOSORBIDE DINITRATE) [Concomitant]
  6. CLOPIDOGREL [Concomitant]
  7. OFLOXACIN [Concomitant]
  8. PHENYLEPHRINE (PHENYLEPHRINE) [Concomitant]
  9. SENNA (SENNA) [Concomitant]
  10. PEGATANIB SODIUM;PLACEBO (CODE NOT BROKEN) UNKNOWN [Suspect]
     Indication: MACULAR OEDEMA
     Dosage: EVERY 6 WEEKS
     Dates: start: 20071210, end: 20100913
  11. FUROSEMIDE [Concomitant]
  12. ATENOLOL [Concomitant]
  13. GTN (GLYCERYL TRINITRATE) [Concomitant]
  14. INSULIN RETARD LEO (INSULIN INJECTION, ISOPHANE) [Concomitant]
  15. AMLODIPINE [Concomitant]
  16. RAMIPRIL [Concomitant]
  17. NICORANDIL (NICORANDIL) [Concomitant]

REACTIONS (1)
  - ANGINA UNSTABLE [None]
